FAERS Safety Report 6819090-1 (Version None)
Quarter: 2010Q3

REPORT INFORMATION
  Report Type: 
  Country: None (occurrence: None)
  Receive Date: 20100707
  Receipt Date: 20100629
  Transmission Date: 20110219
  Serious: Yes (Other)
  Sender: FDA-Public Use
  Company Number: US-ELI_LILLY_AND_COMPANY-US201006001827

PATIENT
  Sex: Male

DRUGS (8)
  1. HUMALOG [Suspect]
     Indication: DIABETES MELLITUS
     Dosage: 8 U, 3/D
  2. HUMALOG [Suspect]
     Dosage: 8 U, 3/D
  3. HUMULIN N [Suspect]
     Indication: DIABETES MELLITUS
     Dosage: 40 U, EACH MORNING
  4. HUMULIN N [Suspect]
     Dosage: 40 U, EACH EVENING
  5. HUMULIN N [Suspect]
     Dosage: 40 U, EACH MORNING
  6. HUMULIN N [Suspect]
     Dosage: 40 U, EACH EVENING
  7. LANTUS [Concomitant]
  8. INSULIN GLARGINE [Concomitant]

REACTIONS (3)
  - ATRIAL FIBRILLATION [None]
  - HYPERTENSIVE CARDIOMYOPATHY [None]
  - POOR QUALITY DRUG ADMINISTERED [None]
